FAERS Safety Report 14429838 (Version 1)
Quarter: 2018Q1

REPORT INFORMATION
  Report Type: Report from Study
  Country: US (occurrence: US)
  Receive Date: 20180123
  Receipt Date: 20180123
  Transmission Date: 20180509
  Serious: No
  Sender: FDA-Public Use
  Company Number: US-AMGEN-USASL2017183595

PATIENT
  Sex: Female

DRUGS (2)
  1. AMBEREN [Concomitant]
     Indication: MENOPAUSE
  2. REPATHA [Suspect]
     Active Substance: EVOLOCUMAB
     Indication: BLOOD CHOLESTEROL INCREASED
     Dosage: 140 MG, Q2WK
     Route: 065
     Dates: start: 20160901

REACTIONS (3)
  - Injection site haemorrhage [Unknown]
  - Urine odour abnormal [Recovered/Resolved]
  - Injection site bruising [Recovering/Resolving]
